FAERS Safety Report 10994947 (Version 1)
Quarter: 2015Q2

REPORT INFORMATION
  Report Type: Spontaneous
  Country: FR (occurrence: FR)
  Receive Date: 20150407
  Receipt Date: 20150407
  Transmission Date: 20150821
  Serious: Yes (Disabling)
  Sender: FDA-Public Use
  Company Number: FR-ASTRAZENECA-2015SE31861

PATIENT
  Age: 42 Year
  Sex: Male

DRUGS (1)
  1. ZOMIGORO [Suspect]
     Active Substance: ZOLMITRIPTAN
     Indication: MIGRAINE
     Route: 048

REACTIONS (3)
  - Muscle rupture [Recovering/Resolving]
  - Muscle contracture [Recovered/Resolved]
  - Amyotrophy [Unknown]

NARRATIVE: CASE EVENT DATE: 2015
